FAERS Safety Report 9196345 (Version 1)
Quarter: 2013Q1

REPORT INFORMATION
  Report Type: Spontaneous
  Country: AU (occurrence: AU)
  Receive Date: 20130328
  Receipt Date: 20130328
  Transmission Date: 20140127
  Serious: Yes (Death, Hospitalization)
  Sender: FDA-Public Use
  Company Number: AU-CELGENEUS-008-C4047-13030639

PATIENT
  Age: 63 Year
  Sex: 0

DRUGS (2)
  1. CC-4047 [Suspect]
     Indication: PRODUCT USED FOR UNKNOWN INDICATION
     Route: 048
  2. CC-4047 [Suspect]
     Route: 048
     Dates: end: 20130304

REACTIONS (3)
  - Disease progression [Fatal]
  - Respiratory tract infection [Recovered/Resolved]
  - General physical health deterioration [Unknown]
